FAERS Safety Report 5047843-1 (Version None)
Quarter: 2006Q3

REPORT INFORMATION
  Report Type: 
  Country: None (occurrence: None)
  Receive Date: 20060706
  Receipt Date: 20060706
  Transmission Date: 20061208
  Serious: Yes (Hospitalization)
  Sender: FDA-Public Use
  Company Number: None

PATIENT
  Age: 81 Year
  Sex: Male

DRUGS (8)
  1. WARFARIN SODIUM [Suspect]
     Indication: ATRIAL FIBRILLATION
     Dosage: WARFARIN 5MG PO QHS, EXCEPT  7.5MG ON MO + FR
     Route: 048
     Dates: start: 20050422, end: 20060303
  2. ADVAIR DISKUS 100/50 [Concomitant]
  3. .. [Concomitant]
  4. .. [Concomitant]
  5. .. [Concomitant]
  6. .. [Concomitant]
  7. .. [Concomitant]
  8. .. [Concomitant]

REACTIONS (4)
  - FLANK PAIN [None]
  - HAEMATOCRIT DECREASED [None]
  - INTERNATIONAL NORMALISED RATIO INCREASED [None]
  - RETROPERITONEAL HAEMATOMA [None]
